FAERS Safety Report 18394788 (Version 3)
Quarter: 2020Q4

REPORT INFORMATION
  Report Type: Spontaneous
  Country: US (occurrence: US)
  Receive Date: 20201016
  Receipt Date: 20201221
  Transmission Date: 20210114
  Serious: No
  Sender: FDA-Public Use
  Company Number: US-PFIZER INC-2020399484

PATIENT
  Age: 60 Year
  Sex: Female

DRUGS (2)
  1. INLYTA [Suspect]
     Active Substance: AXITINIB
     Dosage: UNK
     Dates: start: 20201010
  2. INLYTA [Suspect]
     Active Substance: AXITINIB
     Dosage: 5 MG
     Dates: start: 20201103

REACTIONS (3)
  - Constipation [Recovered/Resolved]
  - Product dose omission issue [Unknown]
  - Asthenia [Unknown]

NARRATIVE: CASE EVENT DATE: 2020
